FAERS Safety Report 17415897 (Version 1)
Quarter: 2020Q1

REPORT INFORMATION
  Report Type: Report from Study
  Country: BE (occurrence: BE)
  Receive Date: 20200213
  Receipt Date: 20200213
  Transmission Date: 20200409
  Serious: Yes (Other)
  Sender: FDA-Public Use
  Company Number: BE-MYLANLABS-2020M1015754

PATIENT
  Age: 51 Year
  Sex: Female

DRUGS (3)
  1. REBIF [Suspect]
     Active Substance: INTERFERON BETA-1A
     Indication: PRODUCT USED FOR UNKNOWN INDICATION
     Dosage: 44 MICROGRAM (0.33 WEEK)
     Route: 058
     Dates: start: 20150709, end: 20190917
  2. ACICLOVIR [Suspect]
     Active Substance: ACYCLOVIR
     Indication: HERPES ZOSTER
     Dosage: ORAL TREATMENT (0.33 DAY)
     Route: 048
  3. ACICLOVIR [Suspect]
     Active Substance: ACYCLOVIR
     Dosage: UNK (0.53 WEEK)
     Route: 048
     Dates: start: 201905

REACTIONS (7)
  - Liver function test increased [Recovered/Resolved]
  - Headache [Unknown]
  - Malaise [Unknown]
  - Nausea [Unknown]
  - Herpes zoster [Unknown]
  - Alcoholic hangover [Unknown]
  - Fatigue [Unknown]
